FAERS Safety Report 22720303 (Version 12)
Quarter: 2024Q1

REPORT INFORMATION
  Report Type: Report from Study
  Country: BD (occurrence: BD)
  Receive Date: 20230719
  Receipt Date: 20240124
  Transmission Date: 20240410
  Serious: Yes (Other)
  Sender: FDA-Public Use
  Company Number: BD-002147023-NVSC2023BD158149

PATIENT
  Age: 39 Year
  Sex: Male

DRUGS (3)
  1. ENTRESTO [Suspect]
     Active Substance: SACUBITRIL\VALSARTAN
     Indication: Cardiac failure chronic
     Dosage: 50 MG, UNKNOWN
     Route: 048
     Dates: start: 202211, end: 202307
  2. ENTRESTO [Suspect]
     Active Substance: SACUBITRIL\VALSARTAN
     Dosage: 1.5 DOSAGE FORM, (HALF TABLET IN THE MORNING AND 1 TABLET IN THE NIGHT)
     Route: 048
     Dates: start: 20230713, end: 202308
  3. ENTRESTO [Suspect]
     Active Substance: SACUBITRIL\VALSARTAN
     Dosage: 0.5 DOSAGE FORM, BID (HALF TABLET TWICE DAILY)
     Route: 065
     Dates: start: 202308

REACTIONS (14)
  - Myocardial infarction [Unknown]
  - Chest discomfort [Recovering/Resolving]
  - Orthopnoea [Unknown]
  - Cough [Recovered/Resolved]
  - Cough [Recovering/Resolving]
  - Vomiting [Recovering/Resolving]
  - Dyspnoea [Recovering/Resolving]
  - Asthma [Recovering/Resolving]
  - Gait disturbance [Recovering/Resolving]
  - Asthenia [Recovering/Resolving]
  - Illness [Unknown]
  - Weight decreased [Recovering/Resolving]
  - Sleep deficit [Unknown]
  - Wrong technique in product usage process [Not Recovered/Not Resolved]

NARRATIVE: CASE EVENT DATE: 20230713
